FAERS Safety Report 21089314 (Version 2)
Quarter: 2022Q3

REPORT INFORMATION
  Report Type: Spontaneous
  Country: GB (occurrence: GB)
  Receive Date: 20220715
  Receipt Date: 20220722
  Transmission Date: 20221027
  Serious: Yes (Other)
  Sender: FDA-Public Use
  Company Number: GB-MHRA-MED-202206021433204290-JSNKP

PATIENT
  Age: 59 Year
  Sex: Female
  Weight: 59 kg

DRUGS (10)
  1. PAXLOVID [Suspect]
     Active Substance: NIRMATRELVIR\RITONAVIR
     Indication: COVID-19 treatment
     Dosage: UNK UNK, 2X/DAY ([PF-073211332150 MG /RITONAVIR100 MG]; 2X/DAY)
     Dates: start: 20220601
  2. CALCIUM CARBONATE\CHOLECALCIFEROL [Concomitant]
     Active Substance: CALCIUM CARBONATE\CHOLECALCIFEROL
     Indication: Prophylaxis
     Dosage: 1 DF
  3. AZITHROMYCIN [Concomitant]
     Active Substance: AZITHROMYCIN
     Indication: Bronchiectasis
     Dosage: 250 MG
  4. ALENDRONATE [Concomitant]
     Active Substance: ALENDRONATE SODIUM
     Indication: Prophylaxis
     Dosage: 70 MG, WEEKLY
  5. FOLIC ACID [Concomitant]
     Active Substance: FOLIC ACID
     Indication: Vasculitis
     Dosage: 5 MG, 1X/DAY
  6. GABAPENTIN [Concomitant]
     Active Substance: GABAPENTIN
     Indication: Post herpetic neuralgia
     Dosage: 600 MG, 2X/DAY
  7. LANSOPRAZOLE [Concomitant]
     Active Substance: LANSOPRAZOLE
     Indication: Prophylaxis
     Dosage: 15 MG, 1X/DAY
  8. METHOTREXATE [Concomitant]
     Active Substance: METHOTREXATE
     Indication: Vasculitis
     Dosage: 15 MG, WEEKLY
  9. PREDNISOLONE [Concomitant]
     Active Substance: PREDNISOLONE
     Indication: Vasculitis
     Dosage: 1 MG, 1X/DAY
  10. ACETAMINOPHEN [Concomitant]
     Active Substance: ACETAMINOPHEN
     Indication: Back pain

REACTIONS (6)
  - Nausea [Not Recovered/Not Resolved]
  - Dysgeusia [Recovered/Resolved]
  - Asthenia [Not Recovered/Not Resolved]
  - Photophobia [Not Recovered/Not Resolved]
  - Headache [Recovering/Resolving]
  - Product dose omission issue [Unknown]

NARRATIVE: CASE EVENT DATE: 20220601
